FAERS Safety Report 5800385-5 (Version None)
Quarter: 2008Q3

REPORT INFORMATION
  Report Type: 
  Country: None (occurrence: None)
  Receive Date: 20080703
  Receipt Date: 20080627
  Transmission Date: 20090109
  Serious: Yes (Hospitalization)
  Sender: FDA-Public Use
  Company Number: US-MERCK-0706USA03748

PATIENT
  Age: 59 Year
  Sex: Female

DRUGS (3)
  1. FOSAMAX [Suspect]
     Indication: OSTEOPOROSIS
     Route: 048
     Dates: start: 20030116, end: 20060225
  2. METFORMIN [Concomitant]
     Route: 065
     Dates: start: 19870101
  3. PREMARIN [Concomitant]
     Route: 065
     Dates: start: 19910101

REACTIONS (14)
  - BLOOD CHOLESTEROL INCREASED [None]
  - BLOOD CREATINE PHOSPHOKINASE MB INCREASED [None]
  - DENTAL CARIES [None]
  - DEPRESSION [None]
  - FIBROMA [None]
  - HYPERTENSIVE HEART DISEASE [None]
  - HYPERTRIGLYCERIDAEMIA [None]
  - HYPOTHYROIDISM [None]
  - LEUKOPLAKIA [None]
  - NON-CARDIAC CHEST PAIN [None]
  - OSTEOPENIA [None]
  - PERIODONTITIS [None]
  - RESORPTION BONE INCREASED [None]
  - RHEUMATOID ARTHRITIS [None]
